FAERS Safety Report 5313490-7 (Version None)
Quarter: 2007Q2

REPORT INFORMATION
  Report Type: 
  Country: None (occurrence: None)
  Receive Date: 20070501
  Receipt Date: 20070424
  Transmission Date: 20071010
  Serious: Yes (Death, Hospitalization)
  Sender: FDA-Public Use
  Company Number: FR-AVENTIS-200711474FR

PATIENT
  Age: 81 Year
  Sex: Male

DRUGS (6)
  1. RIFADIN [Suspect]
     Indication: ARTHRITIS BACTERIAL
     Route: 042
     Dates: start: 20070308, end: 20070313
  2. OFLOCET                            /00731801/ [Concomitant]
     Indication: ARTHRITIS BACTERIAL
     Route: 042
     Dates: start: 20070308
  3. CALCIPARINE [Concomitant]
     Indication: DRUG USE FOR UNKNOWN INDICATION
     Route: 042
     Dates: end: 20070313
  4. MORPHINE [Concomitant]
     Indication: DRUG USE FOR UNKNOWN INDICATION
     Route: 042
     Dates: start: 20070313
  5. RENITEC                            /00574901/ [Concomitant]
     Indication: ESSENTIAL HYPERTENSION
     Route: 048
     Dates: start: 20070213
  6. SEROPRAM [Concomitant]
     Indication: DRUG USE FOR UNKNOWN INDICATION
     Route: 042
     Dates: start: 20070308, end: 20070315

REACTIONS (4)
  - COMA [None]
  - DEATH [None]
  - PURPURA [None]
  - THROMBOCYTOPENIC PURPURA [None]
